FAERS Safety Report 12255650 (Version 1)
Quarter: 2016Q2

REPORT INFORMATION
  Report Type: Spontaneous
  Country: US (occurrence: None)
  Receive Date: 20160411
  Receipt Date: 20160411
  Transmission Date: 20160815
  Serious: Yes (Other)
  Sender: FDA-Public Use
  Company Number: None

PATIENT
  Age: 89 Year
  Sex: Male
  Weight: 78 kg

DRUGS (3)
  1. VANCOMYCIN [Suspect]
     Active Substance: VANCOMYCIN
     Dosage: Q24, IV (D.L.PICC)
     Route: 042
     Dates: start: 20160311, end: 20160316
  2. VANCOMYCIN [Suspect]
     Active Substance: VANCOMYCIN
     Indication: SEPSIS
     Dosage: Q24, IV (D.L.PICC)
     Route: 042
     Dates: start: 20160311, end: 20160316
  3. VANCOMYCIN [Suspect]
     Active Substance: VANCOMYCIN
     Indication: CELLULITIS
     Dosage: Q24, IV (D.L.PICC)
     Route: 042
     Dates: start: 20160311, end: 20160316

REACTIONS (1)
  - Rash [None]

NARRATIVE: CASE EVENT DATE: 20160316
